FAERS Safety Report 12643814 (Version 1)
Quarter: 2016Q3

REPORT INFORMATION
  Report Type: Spontaneous
  Country: PL (occurrence: PL)
  Receive Date: 20160811
  Receipt Date: 20160811
  Transmission Date: 20161109
  Serious: Yes (Life-Threatening)
  Sender: FDA-Public Use
  Company Number: PL-PFIZER INC-2016054476

PATIENT
  Age: 61 Year
  Sex: Female
  Weight: 58 kg

DRUGS (1)
  1. CARBOPLATIN. [Suspect]
     Active Substance: CARBOPLATIN
     Indication: OVARIAN CANCER
     Dosage: 340 MG,
     Route: 042
     Dates: start: 20151026, end: 20151026

REACTIONS (8)
  - Generalised erythema [Recovered/Resolved]
  - Bronchospasm [Recovered/Resolved]
  - Urinary incontinence [Recovered/Resolved]
  - Tachycardia [Recovered/Resolved]
  - Injection site urticaria [Recovered/Resolved]
  - Blood pressure decreased [Recovered/Resolved]
  - Seizure [Recovered/Resolved]
  - Shock [Recovered/Resolved]

NARRATIVE: CASE EVENT DATE: 20151026
